FAERS Safety Report 18004823 (Version 1)
Quarter: 2020Q3

REPORT INFORMATION
  Report Type: Spontaneous
  Country: US (occurrence: US)
  Receive Date: 20200710
  Receipt Date: 20200710
  Transmission Date: 20201103
  Serious: No
  Sender: FDA-Public Use
  Company Number: US-009507513-2006USA004352

PATIENT
  Sex: Male

DRUGS (5)
  1. GLIPIZIDE. [Concomitant]
     Active Substance: GLIPIZIDE
  2. ELIQUIS [Concomitant]
     Active Substance: APIXABAN
  3. PROVENTIL [Suspect]
     Active Substance: ALBUTEROL
     Indication: ASTHMA
     Dosage: 1 PUFF AS NEED
  4. CARVEDILOL. [Concomitant]
     Active Substance: CARVEDILOL
  5. POTASSIUM (UNSPECIFIED) [Concomitant]
     Active Substance: POTASSIUM
     Dosage: UNK

REACTIONS (3)
  - Dyspnoea [Not Recovered/Not Resolved]
  - Product dose omission issue [Unknown]
  - Chest discomfort [Not Recovered/Not Resolved]

NARRATIVE: CASE EVENT DATE: 2020
